FAERS Safety Report 15512949 (Version 1)
Quarter: 2018Q4

REPORT INFORMATION
  Report Type: Spontaneous
  Country: US (occurrence: US)
  Receive Date: 20181016
  Receipt Date: 20181016
  Transmission Date: 20190205
  Serious: No
  Sender: FDA-Public Use
  Company Number: US-AMGEN-USASP2018061730

PATIENT
  Age: 47 Year
  Sex: Male

DRUGS (2)
  1. NEULASTA [Suspect]
     Active Substance: PEGFILGRASTIM
     Indication: NEUTROPENIA
     Dosage: 6 MG, WITH EACH CHEMOTHERAPY CYCLE
     Route: 065
  2. CAMPTOSAR [Concomitant]
     Active Substance: IRINOTECAN HYDROCHLORIDE
     Indication: NEOPLASM MALIGNANT
     Dosage: UNK, UNK, TWICE IN TWO WEEKS THEN OFF A WEEK

REACTIONS (1)
  - Headache [Unknown]

NARRATIVE: CASE EVENT DATE: 201804
